FAERS Safety Report 5104827-2 (Version None)
Quarter: 2006Q3

REPORT INFORMATION
  Report Type: 
  Country: None (occurrence: None)
  Receive Date: 20060914
  Receipt Date: 20060728
  Transmission Date: 20061208
  Serious: Yes (Other)
  Sender: FDA-Public Use
  Company Number: US-ROCHE-457737

PATIENT
  Age: 32 Year
  Sex: Female

DRUGS (5)
  1. PEGASYS [Suspect]
     Dosage: STRENGTH AND FORMULATION = 180 MCG/0.5 CC
     Route: 058
     Dates: start: 20060715
  2. COPEGUS [Suspect]
     Route: 048
     Dates: start: 20060715
  3. LITHIUM CARBONATE [Concomitant]
     Indication: BIPOLAR DISORDER
     Route: 048
  4. PROZAC [Concomitant]
     Indication: BIPOLAR DISORDER
     Route: 048
  5. KLONOPIN [Concomitant]
     Indication: BIPOLAR DISORDER
     Dosage: HS.
     Route: 048
     Dates: start: 20060730

REACTIONS (19)
  - AMNESIA [None]
  - ANGER [None]
  - ANXIETY [None]
  - BIPOLAR DISORDER [None]
  - CONDITION AGGRAVATED [None]
  - DEPRESSION [None]
  - DIARRHOEA [None]
  - FATIGUE [None]
  - HEADACHE [None]
  - INSOMNIA [None]
  - IRRITABILITY [None]
  - MOOD SWINGS [None]
  - NAUSEA [None]
  - PAIN [None]
  - PAIN IN EXTREMITY [None]
  - PRURITUS [None]
  - SUICIDAL IDEATION [None]
  - WEIGHT DECREASED [None]
  - WHITE BLOOD CELL COUNT DECREASED [None]
